FAERS Safety Report 19975747 (Version 1)
Quarter: 2021Q4

REPORT INFORMATION
  Report Type: Report from Study
  Country: HN (occurrence: HN)
  Receive Date: 20211020
  Receipt Date: 20211020
  Transmission Date: 20220303
  Serious: Yes (Death)
  Sender: FDA-Public Use
  Company Number: 2021A731795

PATIENT
  Age: 26278 Day
  Sex: Male
  Weight: 68 kg

DRUGS (1)
  1. SYMBICORT [Suspect]
     Active Substance: BUDESONIDE\FORMOTEROL FUMARATE DIHYDRATE
     Indication: Dyspnoea
     Dosage: 160/4.5 TWO INHALATIONS PER DAY160UG/INHAL TWO TIMES A DAY
     Route: 055
     Dates: start: 20210209, end: 20210309

REACTIONS (2)
  - Productive cough [Fatal]
  - Off label use [Unknown]

NARRATIVE: CASE EVENT DATE: 20210209
